FAERS Safety Report 13038506 (Version 2)
Quarter: 2017Q4

REPORT INFORMATION
  Report Type: Spontaneous
  Country: US (occurrence: US)
  Receive Date: 20161219
  Receipt Date: 20171218
  Transmission Date: 20180320
  Serious: No
  Sender: FDA-Public Use
  Company Number: US-AUROBINDO-AUR-APL-2015-01536

PATIENT
  Sex: Male

DRUGS (1)
  1. SERTRALINE ORAL CONCENTRATE [Suspect]
     Active Substance: SERTRALINE HYDROCHLORIDE
     Indication: PRODUCT USED FOR UNKNOWN INDICATION
     Dosage: 1 ML, AT BED TIME
     Route: 048

REACTIONS (2)
  - Vomiting [Unknown]
  - Product quality issue [Unknown]
